FAERS Safety Report 19264085 (Version 1)
Quarter: 2021Q2

REPORT INFORMATION
  Report Type: Spontaneous
  Country: US (occurrence: US)
  Receive Date: 20210514
  Receipt Date: 20210514
  Transmission Date: 20210717
  Serious: Yes (Other)
  Sender: FDA-Public Use
  Company Number: None

PATIENT
  Age: 10 Year
  Sex: Female
  Weight: 30 kg

DRUGS (9)
  1. ETOPOSIDE. [Suspect]
     Active Substance: ETOPOSIDE
     Dates: start: 20210111, end: 20210115
  2. NEULASTA [Concomitant]
     Active Substance: PEGFILGRASTIM
  3. ETOPOSIDE. [Suspect]
     Active Substance: ETOPOSIDE
     Dates: start: 20201109, end: 20201113
  4. CARBOPLATIN. [Concomitant]
     Active Substance: CARBOPLATIN
  5. ETOPOSIDE. [Suspect]
     Active Substance: ETOPOSIDE
     Dates: start: 20201130, end: 20201204
  6. ETOPOSIDE. [Suspect]
     Active Substance: ETOPOSIDE
     Indication: GERM CELL NEOPLASM
     Dosage: ?          OTHER FREQUENCY:DAILYX5DAYS ;OTHER ROUTE:IV OVER 1 HOUR?
     Route: 042
     Dates: start: 20201109, end: 20210201
  7. ETOPOSIDE. [Suspect]
     Active Substance: ETOPOSIDE
     Dosage: ?          OTHER FREQUENCY:DAILYX5DAYS ;?
     Route: 042
  8. ETOPOSIDE. [Suspect]
     Active Substance: ETOPOSIDE
     Dates: start: 20201221, end: 20201225
  9. BLEOMYCIN [Concomitant]
     Active Substance: BLEOMYCIN SULFATE

REACTIONS (9)
  - Throat tightness [None]
  - Blood pressure decreased [None]
  - Hypersensitivity [None]
  - Panic reaction [None]
  - Oxygen saturation decreased [None]
  - Dyspnoea [None]
  - Cough [None]
  - Flushing [None]
  - Product quality issue [None]

NARRATIVE: CASE EVENT DATE: 20201130
